FAERS Safety Report 18279459 (Version 3)
Quarter: 2020Q4

REPORT INFORMATION
  Report Type: Spontaneous
  Country: DE (occurrence: DE)
  Receive Date: 20200917
  Receipt Date: 20201202
  Transmission Date: 20210113
  Serious: Yes (Hospitalization)
  Sender: FDA-Public Use
  Company Number: DE-JNJFOC-20200924261

PATIENT
  Age: 64 Year
  Sex: Male

DRUGS (2)
  1. XARELTO [Suspect]
     Active Substance: RIVAROXABAN
     Indication: PULMONARY EMBOLISM
     Dosage: 15 MG, BID 1-0-1
     Route: 048
     Dates: start: 20160920, end: 20161011
  2. XARELTO [Suspect]
     Active Substance: RIVAROXABAN
     Indication: PULMONARY EMBOLISM
     Dosage: 20 MG, QD
     Route: 048
     Dates: start: 20161012

REACTIONS (1)
  - Micturition disorder [Recovered/Resolved]

NARRATIVE: CASE EVENT DATE: 20170312
